FAERS Safety Report 6545978-5 (Version None)
Quarter: 2010Q1

REPORT INFORMATION
  Report Type: 
  Country: None (occurrence: None)
  Receive Date: 20100121
  Receipt Date: 20100121
  Transmission Date: 20100710
  Serious: No
  Sender: FDA-Public Use
  Company Number: None

PATIENT
  Age: 57 Year
  Sex: Female
  Weight: 74.8435 kg

DRUGS (1)
  1. ZICAM COLD REMEDY NASAL GEL [Suspect]
     Indication: NASOPHARYNGITIS
     Dates: start: 20071111, end: 20071111

REACTIONS (4)
  - HYPOGEUSIA [None]
  - HYPOSMIA [None]
  - NASAL DISCOMFORT [None]
  - NO THERAPEUTIC RESPONSE [None]
